FAERS Safety Report 8362464-0 (Version None)
Quarter: 2012Q2

REPORT INFORMATION
  Report Type: 
  Country: None (occurrence: None)
  Receive Date: 20120514
  Receipt Date: 20120514
  Transmission Date: 20120825
  Serious: Yes (Life-Threatening, Other)
  Sender: FDA-Public Use
  Company Number: None

PATIENT
  Age: 51 Year
  Sex: Female
  Weight: 175.9956 kg

DRUGS (2)
  1. DEXAMETHASONE 4MG TAB [Suspect]
     Indication: ASTHMA
     Dosage: 2 TAB X 2 5 DAYS THEN DECRSD PO : 2 TAB X 2 5 DAYS THEN DECRES PO
     Route: 048
     Dates: start: 20120403, end: 20120417
  2. DEXAMETHASONE 4MG TAB [Suspect]
     Indication: ASTHMA
     Dosage: 2 TAB X 2 5 DAYS THEN DECRSD PO : 2 TAB X 2 5 DAYS THEN DECRES PO
     Route: 048
     Dates: start: 20120418, end: 20120506

REACTIONS (13)
  - BLOOD GLUCOSE INCREASED [None]
  - OEDEMA PERIPHERAL [None]
  - JOINT SWELLING [None]
  - AGEUSIA [None]
  - DYSURIA [None]
  - HEART RATE INCREASED [None]
  - THINKING ABNORMAL [None]
  - VISUAL IMPAIRMENT [None]
  - BLOOD PRESSURE INCREASED [None]
  - PANIC ATTACK [None]
  - FOOD INTOLERANCE [None]
  - DYSSTASIA [None]
  - ARRHYTHMIA [None]
